FAERS Safety Report 18114800 (Version 2)
Quarter: 2021Q1

REPORT INFORMATION
  Report Type: Spontaneous
  Country: US (occurrence: US)
  Receive Date: 20200805
  Receipt Date: 20210205
  Transmission Date: 20210419
  Serious: No
  Sender: FDA-Public Use
  Company Number: US-PFIZER INC-2020294586

PATIENT
  Age: 62 Year
  Sex: Female

DRUGS (4)
  1. PLAQUENIL [Concomitant]
     Active Substance: HYDROXYCHLOROQUINE SULFATE
     Dosage: UNK(PER MD DIRECTIONS)
  2. CELEBREX [Concomitant]
     Active Substance: CELECOXIB
     Dosage: UNK(TAPER OFF CELEBREX FOR PAST 2 WEEKS)
  3. XELJANZ XR [Suspect]
     Active Substance: TOFACITINIB CITRATE
     Indication: RHEUMATOID ARTHRITIS
     Dosage: 11 MG, DAILY
     Route: 048
     Dates: start: 20200627
  4. METHOTREXATE. [Concomitant]
     Active Substance: METHOTREXATE
     Dosage: UNK (PER MD DIRECTIONS)

REACTIONS (5)
  - Depression [Unknown]
  - Joint injury [Unknown]
  - Condition aggravated [Unknown]
  - Abdominal discomfort [Unknown]
  - Discouragement [Unknown]
